FAERS Safety Report 10244239 (Version 1)
Quarter: 2014Q2

REPORT INFORMATION
  Report Type: Spontaneous
  Country: PT (occurrence: PT)
  Receive Date: 20140618
  Receipt Date: 20140618
  Transmission Date: 20141212
  Serious: Yes (Life-Threatening)
  Sender: FDA-Public Use
  Company Number: PT-ACTAVIS-2014-12625

PATIENT
  Age: 48 Year
  Sex: Female
  Weight: 69 kg

DRUGS (4)
  1. DOCETAXEL ACTAVIS [Suspect]
     Indication: BREAST CANCER
     Dosage: 100 MG/M2, 1/ THREE WEEKS
     Route: 042
     Dates: start: 20140523, end: 20140523
  2. PREDNISOLONE [Concomitant]
     Indication: ALLERGY PROPHYLAXIS
     Dosage: 40 MG 3 TIMES IN 2 DAYS
     Route: 048
     Dates: start: 20140522, end: 20140523
  3. DEXAMETASONA                       /00016001/ [Concomitant]
     Indication: PROPHYLAXIS OF NAUSEA AND VOMITING
     Dosage: 20 MG, DAILY
     Route: 042
     Dates: start: 20140523, end: 20140523
  4. ONDANSETROM                        /00955301/ [Concomitant]
     Indication: PROPHYLAXIS OF NAUSEA AND VOMITING
     Dosage: 8 MG, DAILY
     Route: 042
     Dates: start: 20140523, end: 20140523

REACTIONS (4)
  - Anaphylactic reaction [Recovered/Resolved]
  - Dyspnoea [Recovered/Resolved]
  - Back pain [Recovered/Resolved]
  - Erythema [Recovered/Resolved]
